FAERS Safety Report 19950105 (Version 1)
Quarter: 2021Q4

REPORT INFORMATION
  Report Type: Spontaneous
  Country: US (occurrence: US)
  Receive Date: 20211008
  Receipt Date: 20211008
  Transmission Date: 20220303
  Serious: No
  Sender: FDA-Public Use
  Company Number: None

PATIENT
  Age: 74 Year
  Sex: Male
  Weight: 98.3 kg

DRUGS (3)
  1. DARATUMUMAB\HYALURONIDASE-FIHJ [Suspect]
     Active Substance: DARATUMUMAB\HYALURONIDASE-FIHJ
     Dates: end: 20210824
  2. DEXAMETHASONE [Suspect]
     Active Substance: DEXAMETHASONE
     Dates: end: 20210824
  3. LENALIDOMIDE [Suspect]
     Active Substance: LENALIDOMIDE
     Dates: end: 20210824

REACTIONS (9)
  - Diarrhoea [None]
  - Flatulence [None]
  - Eructation [None]
  - Gastric pH decreased [None]
  - Abdominal pain [None]
  - Dyspepsia [None]
  - SARS-CoV-2 test positive [None]
  - Blood pressure systolic increased [None]
  - Hypertension [None]

NARRATIVE: CASE EVENT DATE: 20210825
